FAERS Safety Report 9183159 (Version 1)
Quarter: 2013Q1

REPORT INFORMATION
  Report Type: Spontaneous
  Country: US (occurrence: US)
  Receive Date: 20130322
  Receipt Date: 20130322
  Transmission Date: 20140127
  Serious: No
  Sender: FDA-Public Use
  Company Number: US-BRISTOL-MYERS SQUIBB COMPANY-16386112

PATIENT
  Sex: Male

DRUGS (14)
  1. ERBITUX [Suspect]
     Dosage: NO OF INF:02
  2. PRILOSEC [Concomitant]
  3. RANITIDINE [Concomitant]
  4. GAS-X [Concomitant]
  5. CLARITIN [Concomitant]
  6. TOPROL [Concomitant]
  7. GABAPENTIN [Concomitant]
  8. LEXAPRO [Concomitant]
  9. PILOCARPINE [Concomitant]
  10. GLIPIZIDE [Concomitant]
  11. MUCINEX [Concomitant]
  12. ALBUTEROL [Concomitant]
  13. FLONASE [Concomitant]
  14. ADVAIR [Concomitant]

REACTIONS (2)
  - Skin disorder [Unknown]
  - Dizziness [Unknown]
